FAERS Safety Report 25465672 (Version 1)
Quarter: 2025Q2

REPORT INFORMATION
  Report Type: Report from Study
  Country: US (occurrence: US)
  Receive Date: 20250623
  Receipt Date: 20250623
  Transmission Date: 20250716
  Serious: No
  Sender: ACADIA PHARMACEUTICALS
  Company Number: US-ACADIA PHARMACEUTICALS INC.-ACA-2025-PIM-007340

PATIENT
  Age: 80 Year
  Sex: Male

DRUGS (6)
  1. NUPLAZID [Suspect]
     Active Substance: PIMAVANSERIN TARTRATE
     Indication: Parkinson^s disease psychosis
     Dosage: 34 MILLIGRAM, QD
     Route: 048
     Dates: start: 20210818
  2. DONEPEZIL [Concomitant]
     Active Substance: DONEPEZIL
  3. MIODRINA [Concomitant]
  4. RYTARY [Concomitant]
     Active Substance: CARBIDOPA\LEVODOPA
  5. MYRBETRIQ [Concomitant]
     Active Substance: MIRABEGRON
  6. PROLIA [Concomitant]
     Active Substance: DENOSUMAB

REACTIONS (1)
  - Fall [Unknown]

NARRATIVE: CASE EVENT DATE: 20250527
